FAERS Safety Report 9232167 (Version 2)
Quarter: 2013Q2

REPORT INFORMATION
  Report Type: Spontaneous
  Country: US (occurrence: US)
  Receive Date: 20130415
  Receipt Date: 20130523
  Transmission Date: 20140414
  Serious: Yes (Hospitalization, Other)
  Sender: FDA-Public Use
  Company Number: US-PFIZER INC-2013113972

PATIENT
  Age: 36 Year
  Sex: Male

DRUGS (6)
  1. CELEBREX [Suspect]
     Dosage: 200 MG, 1 CAPSULE, 2X/DAY
  2. CELEXA [Concomitant]
     Dosage: 10 MG, UNK
  3. MOBIC [Concomitant]
     Dosage: UNK
  4. ATIVAN [Concomitant]
     Dosage: UNK
  5. FOLIC ACID [Concomitant]
     Dosage: UNK
  6. VITAMIN B1 [Concomitant]
     Dosage: UNK

REACTIONS (5)
  - Craniocerebral injury [Unknown]
  - Hypoxic-ischaemic encephalopathy [Unknown]
  - Cerebral haemorrhage [Unknown]
  - Contusion [Unknown]
  - Alcohol withdrawal syndrome [Unknown]
